FAERS Safety Report 6040233-4 (Version None)
Quarter: 2009Q1

REPORT INFORMATION
  Report Type: 
  Country: None (occurrence: None)
  Receive Date: 20090116
  Receipt Date: 20080122
  Transmission Date: 20090719
  Serious: No
  Sender: FDA-Public Use
  Company Number: US-BRISTOL-MYERS SQUIBB COMPANY-14048474

PATIENT
  Age: 25 Year
  Sex: Male

DRUGS (2)
  1. ABILIFY [Suspect]
     Route: 048
  2. SEROQUEL [Suspect]

REACTIONS (1)
  - EXTRAPYRAMIDAL DISORDER [None]
